FAERS Safety Report 8410111-1 (Version None)
Quarter: 2012Q2

REPORT INFORMATION
  Report Type: 
  Country: None (occurrence: None)
  Receive Date: 20120529
  Receipt Date: 20120514
  Transmission Date: 20120825
  Serious: Yes (Hospitalization)
  Sender: FDA-Public Use
  Company Number: UTC-018832

PATIENT
  Age: 66 Year
  Sex: Female
  Weight: 72.72 kg

DRUGS (4)
  1. ADCIRCA [Concomitant]
  2. DIURETICS (DIURETICS) [Concomitant]
  3. REMODULIN [Suspect]
     Indication: CONNECTIVE TISSUE DISORDER
     Dosage: 24.48 UG/KG (0.017 UG/KG, 1 IN 1 MIN), INTRAVENOUS
     Route: 042
     Dates: start: 20110721
  4. REMODULIN [Suspect]
     Indication: COR PULMONALE CHRONIC
     Dosage: 24.48 UG/KG (0.017 UG/KG, 1 IN 1 MIN), INTRAVENOUS
     Route: 042
     Dates: start: 20110721

REACTIONS (11)
  - DYSARTHRIA [None]
  - WRONG DRUG ADMINISTERED [None]
  - CEREBROVASCULAR ACCIDENT [None]
  - MUSCULOSKELETAL DISORDER [None]
  - CONVULSION [None]
  - HOT FLUSH [None]
  - HEADACHE [None]
  - HYPOAESTHESIA [None]
  - DIZZINESS [None]
  - MEDICATION ERROR [None]
  - SYNCOPE [None]
